FAERS Safety Report 6301401-7 (Version None)
Quarter: 2009Q3

REPORT INFORMATION
  Report Type: 
  Country: None (occurrence: None)
  Receive Date: 20090807
  Receipt Date: 20090729
  Transmission Date: 20100115
  Serious: Yes (Hospitalization)
  Sender: FDA-Public Use
  Company Number: JP-PFIZER INC-2009228113

PATIENT
  Age: 26 Year

DRUGS (4)
  1. SUNITINIB MALATE [Suspect]
     Indication: RENAL CELL CARCINOMA
     Dosage: 50 MG, 1X/DAY
     Dates: start: 20090213
  2. PASTARON [Concomitant]
     Route: 062
     Dates: start: 20090215
  3. GASTER OD [Concomitant]
     Route: 048
     Dates: start: 20090217
  4. LOXOPROFEN SODIUM [Concomitant]
     Route: 048
     Dates: start: 20090221

REACTIONS (1)
  - PALMAR-PLANTAR ERYTHRODYSAESTHESIA SYNDROME [None]
